FAERS Safety Report 5602518-2 (Version None)
Quarter: 2008Q1

REPORT INFORMATION
  Report Type: 
  Country: None (occurrence: None)
  Receive Date: 20080125
  Receipt Date: 20080118
  Transmission Date: 20080703
  Serious: Yes (Life-Threatening)
  Sender: FDA-Public Use
  Company Number: B0498112A

PATIENT
  Age: 88 Year
  Sex: Female

DRUGS (10)
  1. ARIXTRA [Suspect]
     Indication: THROMBOSIS PROPHYLAXIS
     Dosage: 2.5MG PER DAY
     Route: 058
     Dates: start: 20071102, end: 20071115
  2. FUROSEMIDE [Concomitant]
  3. ALDACTONE [Concomitant]
     Route: 048
  4. TAKEPRON [Concomitant]
  5. NEUTROPIN [Concomitant]
  6. MUCOSTA [Concomitant]
     Route: 048
  7. MARZULENE-S [Concomitant]
     Route: 048
  8. BERIZYM [Concomitant]
     Route: 048
  9. LAC B [Concomitant]
     Dosage: 2.01G PER DAY
     Route: 048
  10. HOKUNALIN [Concomitant]
     Route: 062

REACTIONS (4)
  - DIVERTICULUM INTESTINAL [None]
  - GASTROINTESTINAL HAEMORRHAGE [None]
  - HAEMOGLOBIN DECREASED [None]
  - MELAENA [None]
